FAERS Safety Report 19241019 (Version 1)
Quarter: 2021Q2

REPORT INFORMATION
  Report Type: Spontaneous
  Country: US (occurrence: US)
  Receive Date: 20210510
  Receipt Date: 20210510
  Transmission Date: 20210717
  Serious: Yes (Disabling)
  Sender: FDA-Public Use
  Company Number: None

PATIENT
  Age: 55 Year
  Sex: Male

DRUGS (1)
  1. EYLEA [Suspect]
     Active Substance: AFLIBERCEPT
     Indication: RETINAL VEIN OCCLUSION
     Dosage: ?          OTHER FREQUENCY:ONCE;?
     Route: 031
     Dates: start: 20150101

REACTIONS (3)
  - Retinal occlusive vasculitis [None]
  - Blindness [None]
  - Retinal haemorrhage [None]

NARRATIVE: CASE EVENT DATE: 20210510
